FAERS Safety Report 18099280 (Version 1)
Quarter: 2020Q3

REPORT INFORMATION
  Report Type: Spontaneous
  Country: US (occurrence: US)
  Receive Date: 20200731
  Receipt Date: 20200731
  Transmission Date: 20201103
  Serious: No
  Sender: FDA-Public Use
  Company Number: US-HORIZON-PEN-0366-2020

PATIENT
  Age: 63 Year
  Sex: Female

DRUGS (1)
  1. PENNSAID [Suspect]
     Active Substance: DICLOFENAC SODIUM
     Indication: POST PROCEDURAL INFLAMMATION
     Dosage: EVERY 2?3 DAYS IF PATIENT HAD A FLARE UP

REACTIONS (3)
  - Off label use [Recovered/Resolved]
  - Rash [Unknown]
  - Intentional product misuse [Recovered/Resolved]
